FAERS Safety Report 7175329-7 (Version None)
Quarter: 2010Q4

REPORT INFORMATION
  Report Type: 
  Country: None (occurrence: None)
  Receive Date: 20101220
  Receipt Date: 20100307
  Transmission Date: 20110411
  Serious: No
  Sender: FDA-Public Use
  Company Number: US-AMGEN-TCS398104

PATIENT

DRUGS (2)
  1. ENBREL [Suspect]
     Indication: RHEUMATOID ARTHRITIS
     Dosage: 50 MG, QWK
     Route: 058
  2. UNKNOWN DRUG[INGREDIENT UNKNOWN] [Concomitant]

REACTIONS (4)
  - GOUT [None]
  - PAIN [None]
  - SWELLING [None]
  - THERAPEUTIC RESPONSE DELAYED [None]
